FAERS Safety Report 9118003 (Version 1)
Quarter: 2013Q1

REPORT INFORMATION
  Report Type: Spontaneous
  Country: IE (occurrence: IE)
  Receive Date: 20130226
  Receipt Date: 20130226
  Transmission Date: 20140127
  Serious: Yes (Other)
  Sender: FDA-Public Use
  Company Number: PHFR2005IE00821

PATIENT
  Age: 47 Year
  Sex: Male

DRUGS (6)
  1. CLOZARIL [Suspect]
     Indication: SCHIZOPHRENIA
     Dosage: 12.5 MG/DAY
     Route: 048
     Dates: start: 20050201, end: 20050204
  2. CHLORPROMAZINE [Concomitant]
     Indication: SCHIZOPHRENIA
     Dosage: 100 MG, BID
     Route: 048
     Dates: start: 20030207
  3. OLANZAPINE [Concomitant]
     Indication: SCHIZOPHRENIA
     Dosage: 20 MG/DAY
     Route: 048
     Dates: start: 20030207
  4. LUSTRAL [Concomitant]
     Indication: DEPRESSION
     Dosage: 100 MG/DAY
     Route: 048
     Dates: start: 20030123
  5. ZIMOVANE [Concomitant]
     Indication: INSOMNIA
     Dosage: 7.5 MG/DAY
     Route: 048
     Dates: start: 20030123
  6. HALOPERIDOL [Concomitant]
     Dosage: 5 MG/DAY
     Route: 048
     Dates: start: 20031005

REACTIONS (7)
  - Sinus tachycardia [Unknown]
  - Palpitations [Recovered/Resolved]
  - Cardiac disorder [Unknown]
  - Dizziness [Unknown]
  - Chest pain [Recovered/Resolved]
  - Blood pressure increased [Unknown]
  - Electrocardiogram change [Unknown]
